FAERS Safety Report 5739650-9 (Version None)
Quarter: 2008Q2

REPORT INFORMATION
  Report Type: 
  Country: None (occurrence: None)
  Receive Date: 20080513
  Receipt Date: 20080429
  Transmission Date: 20081010
  Serious: Yes (Other)
  Sender: FDA-Public Use
  Company Number: 2008VX000363

PATIENT
  Sex: Male

DRUGS (3)
  1. PERGOLIDE MESYLATE [Suspect]
     Indication: PARKINSON'S DISEASE
     Dosage: 0.75 MG; QD; PO, 5 MG; QD; PO
     Route: 048
     Dates: end: 20070601
  2. PERGOLIDE MESYLATE [Suspect]
     Indication: PARKINSON'S DISEASE
     Dosage: 0.75 MG; QD; PO, 5 MG; QD; PO
     Route: 048
     Dates: start: 20010101
  3. SINEMET [Concomitant]

REACTIONS (12)
  - ABNORMAL BEHAVIOUR [None]
  - BULIMIA NERVOSA [None]
  - COMPULSIVE SHOPPING [None]
  - ERYSIPELAS [None]
  - HYPERSEXUALITY [None]
  - LYMPHATIC DISORDER [None]
  - OBESITY [None]
  - PATHOLOGICAL GAMBLING [None]
  - PERIODIC LIMB MOVEMENT DISORDER [None]
  - SLEEP APNOEA SYNDROME [None]
  - SOMNOLENCE [None]
  - WEIGHT INCREASED [None]
